FAERS Safety Report 4750285-7 (Version None)
Quarter: 2005Q3

REPORT INFORMATION
  Report Type: 
  Country: None (occurrence: None)
  Receive Date: 20050823
  Receipt Date: 20050810
  Transmission Date: 20060218
  Serious: Yes (Hospitalization)
  Sender: FDA-Public Use
  Company Number: GB-AMGEN-UK146413

PATIENT
  Sex: Male

DRUGS (3)
  1. NEUPOGEN [Suspect]
     Indication: CHEMOTHERAPY
     Route: 058
     Dates: start: 20050807
  2. PACLITAXEL [Concomitant]
     Route: 065
     Dates: start: 20050805
  3. CARBOPLATIN [Concomitant]
     Route: 065
     Dates: start: 20050805

REACTIONS (1)
  - TACHYCARDIA [None]
